FAERS Safety Report 11309822 (Version 1)
Quarter: 2015Q3

REPORT INFORMATION
  Report Type: Spontaneous
  Country: FR (occurrence: FR)
  Receive Date: 20150724
  Receipt Date: 20150724
  Transmission Date: 20151125
  Serious: Yes (Death)
  Sender: FDA-Public Use
  Company Number: FR-FRESENIUS KABI-FK201503535

PATIENT
  Age: 4 Month

DRUGS (3)
  1. CARBOPLATIN (MANUFACTURER UNKNOWN) [Suspect]
     Active Substance: CARBOPLATIN
     Indication: NEPHROBLASTOMA
     Route: 065
  2. ACTINOMYCINES [Suspect]
     Active Substance: UNSPECIFIED INGREDIENT
     Indication: NEPHROBLASTOMA
  3. VINCRISTINE [Suspect]
     Active Substance: VINCRISTINE
     Indication: NEPHROBLASTOMA

REACTIONS (4)
  - Venoocclusive disease [Fatal]
  - Sepsis [Fatal]
  - Pancytopenia [Fatal]
  - Cardiac failure [Fatal]
